FAERS Safety Report 8374336-6 (Version None)
Quarter: 2012Q2

REPORT INFORMATION
  Report Type: 
  Country: None (occurrence: None)
  Receive Date: 20120521
  Receipt Date: 20120516
  Transmission Date: 20120825
  Serious: Yes (Death, Hospitalization)
  Sender: FDA-Public Use
  Company Number: VE-ABBOTT-12P-178-0936354-00

PATIENT
  Sex: Male

DRUGS (1)
  1. HUMIRA [Suspect]
     Indication: PSORIASIS
     Dosage: ONE PRE-FILLED SYRINGE EVERY OTHER WEEK
     Route: 058
     Dates: start: 20110824, end: 20120121

REACTIONS (3)
  - GASTRIC ULCER [None]
  - GASTRIC CANCER [None]
  - DYSPEPSIA [None]
